FAERS Safety Report 5822697-1 (Version None)
Quarter: 2008Q3

REPORT INFORMATION
  Report Type: 
  Country: None (occurrence: None)
  Receive Date: 20080718
  Receipt Date: 20071221
  Transmission Date: 20090109
  Serious: Yes (Hospitalization, Other)
  Sender: FDA-Public Use
  Company Number: 2008PV000001

PATIENT
  Sex: Male

DRUGS (1)
  1. DEPODUR [Suspect]
     Indication: PAIN
     Dosage: X1;ED
     Route: 008
     Dates: start: 20071221, end: 20071221

REACTIONS (1)
  - URINARY RETENTION [None]
